FAERS Safety Report 16151565 (Version 1)
Quarter: 2019Q2

REPORT INFORMATION
  Report Type: Spontaneous
  Country: US (occurrence: US)
  Receive Date: 20190403
  Receipt Date: 20190403
  Transmission Date: 20190711
  Serious: Yes (Hospitalization)
  Sender: FDA-Public Use
  Company Number: US-JNJFOC-20190343746

PATIENT
  Age: 21 Year
  Sex: Female

DRUGS (4)
  1. DOXORUBICIN HYDROCHLORIDE. [Suspect]
     Active Substance: DOXORUBICIN HYDROCHLORIDE
     Indication: OSTEOSARCOMA
     Route: 042
  2. DACARBAZINE. [Suspect]
     Active Substance: DACARBAZINE
     Indication: OSTEOSARCOMA
     Route: 065
  3. MESNA. [Suspect]
     Active Substance: MESNA
     Indication: OSTEOSARCOMA
     Route: 065
  4. IFOSFAMIDE. [Suspect]
     Active Substance: IFOSFAMIDE
     Indication: OSTEOSARCOMA
     Route: 042

REACTIONS (13)
  - Haematemesis [Unknown]
  - Hypokalaemia [Unknown]
  - Abdominal pain [Unknown]
  - Stomatitis [Unknown]
  - Overdose [Unknown]
  - Nausea [Unknown]
  - Off label use [Unknown]
  - Skin exfoliation [Unknown]
  - Blood creatinine increased [Unknown]
  - Febrile neutropenia [Unknown]
  - Diarrhoea [Unknown]
  - Oral candidiasis [Unknown]
  - Product use in unapproved indication [Unknown]
